FAERS Safety Report 10267883 (Version 1)
Quarter: 2014Q2

REPORT INFORMATION
  Report Type: Spontaneous
  Country: US (occurrence: US)
  Receive Date: 20140630
  Receipt Date: 20140630
  Transmission Date: 20141212
  Serious: Yes (Other)
  Sender: FDA-Public Use
  Company Number: US-TEVA-490471USA

PATIENT
  Sex: Male

DRUGS (1)
  1. TRIAMCINOLONE [Suspect]

REACTIONS (2)
  - Deafness [Unknown]
  - Dry throat [Unknown]
